FAERS Safety Report 10885322 (Version 2)
Quarter: 2015Q1

REPORT INFORMATION
  Report Type: Report from Study
  Country: US (occurrence: US)
  Receive Date: 20150304
  Receipt Date: 20150324
  Transmission Date: 20150721
  Serious: Yes (Death, Other)
  Sender: FDA-Public Use
  Company Number: PHEH2015US004099

PATIENT
  Sex: Male

DRUGS (1)
  1. EXJADE [Suspect]
     Active Substance: DEFERASIROX
     Indication: MYELODYSPLASTIC SYNDROME
     Route: 065

REACTIONS (5)
  - Cardiac failure congestive [Fatal]
  - Diabetes mellitus [Fatal]
  - Coronary artery disease [Fatal]
  - Myelodysplastic syndrome [Fatal]
  - Escherichia infection [Unknown]
